FAERS Safety Report 13536262 (Version 1)
Quarter: 2017Q2

REPORT INFORMATION
  Report Type: Spontaneous
  Country: US (occurrence: US)
  Receive Date: 20170511
  Receipt Date: 20170511
  Transmission Date: 20170830
  Serious: No
  Sender: FDA-Public Use
  Company Number: None

PATIENT
  Age: 70 Year
  Sex: Male
  Weight: 108 kg

DRUGS (14)
  1. PIOGLITAZONE. [Concomitant]
     Active Substance: PIOGLITAZONE
  2. ISOSORBIDE. [Concomitant]
     Active Substance: ISOSORBIDE
  3. NITROGLYCERIN. [Concomitant]
     Active Substance: NITROGLYCERIN
  4. HYDROCORTISONE. [Concomitant]
     Active Substance: HYDROCORTISONE
  5. METFORMIN [Concomitant]
     Active Substance: METFORMIN HYDROCHLORIDE
  6. ACTOS [Concomitant]
     Active Substance: PIOGLITAZONE HYDROCHLORIDE
  7. CARVEDILOL. [Concomitant]
     Active Substance: CARVEDILOL
  8. TUMS [Concomitant]
     Active Substance: CALCIUM CARBONATE
  9. ZOLPIDEM [Suspect]
     Active Substance: ZOLPIDEM\ZOLPIDEM TARTRATE
     Indication: CONTINUOUS POSITIVE AIRWAY PRESSURE
     Route: 048
     Dates: start: 20170418, end: 20170418
  10. XARELTO [Concomitant]
     Active Substance: RIVAROXABAN
  11. RANEXA [Concomitant]
     Active Substance: RANOLAZINE
  12. VITAMIN E [Concomitant]
     Active Substance: .ALPHA.-TOCOPHEROL
  13. ASPIRIN. [Concomitant]
     Active Substance: ASPIRIN
  14. LISINOPRIL. [Concomitant]
     Active Substance: LISINOPRIL

REACTIONS (6)
  - Confusional state [None]
  - Vomiting [None]
  - Feeling drunk [None]
  - Disorientation [None]
  - Urinary retention [None]
  - Mobility decreased [None]

NARRATIVE: CASE EVENT DATE: 20170418
